FAERS Safety Report 20647587 (Version 1)
Quarter: 2022Q1

REPORT INFORMATION
  Report Type: Spontaneous
  Country: US (occurrence: None)
  Receive Date: 20220328
  Receipt Date: 20220328
  Transmission Date: 20220423
  Serious: Yes (unspecified)
  Sender: FDA-Public Use
  Company Number: None

PATIENT
  Age: 32 Year
  Sex: Female
  Weight: 86.2 kg

DRUGS (1)
  1. EVUSHELD [Suspect]
     Active Substance: CILGAVIMAB\TIXAGEVIMAB
     Indication: COVID-19 prophylaxis
     Dosage: OTHER FREQUENCY : ONCE;?
     Route: 030
     Dates: start: 20220323, end: 20220323

REACTIONS (6)
  - Swollen tongue [None]
  - Lip swelling [None]
  - Flushing [None]
  - Paraesthesia [None]
  - Feeling abnormal [None]
  - Injection related reaction [None]

NARRATIVE: CASE EVENT DATE: 20220323
